FAERS Safety Report 8792528 (Version 1)
Quarter: 2012Q4

REPORT INFORMATION
  Report Type: 
  Country: IT (occurrence: IT)
  Receive Date: 20120918
  Receipt Date: 20120918
  Transmission Date: 20130627
  Serious: Yes (Death, Other)
  Sender: FDA-Public Use
  Company Number: IT-CELGENEUS-083-20785-12090865

PATIENT

DRUGS (3)
  1. THALIDOMIDE [Suspect]
     Indication: MULTIPLE MYELOMA
     Route: 048
  2. MELPHALAN [Suspect]
     Indication: MULTIPLE MYELOMA
     Route: 065
  3. PREDNISONE [Suspect]
     Indication: MULTIPLE MYELOMA
     Route: 065

REACTIONS (15)
  - Infection [Fatal]
  - Embolism [Fatal]
  - Pulmonary oedema [Fatal]
  - Cardiac disorder [Fatal]
  - Cerebrovascular accident [Fatal]
  - Polyneuropathy [Unknown]
  - Haematotoxicity [Unknown]
  - Deep vein thrombosis [Unknown]
  - Pulmonary embolism [Unknown]
  - Neurotoxicity [Unknown]
  - Plasma cell myeloma [Unknown]
  - Skin toxicity [Unknown]
  - Gastrointestinal disorder [Unknown]
  - Adverse event [Unknown]
  - Constipation [Unknown]
